FAERS Safety Report 6170172-X (Version None)
Quarter: 2009Q2

REPORT INFORMATION
  Report Type: 
  Country: None (occurrence: None)
  Receive Date: 20090427
  Receipt Date: 20090427
  Transmission Date: 20091009
  Serious: No
  Sender: FDA-Public Use
  Company Number: None

PATIENT
  Sex: Female
  Weight: 61.2356 kg

DRUGS (2)
  1. ACTONEL [Suspect]
     Indication: PROPHYLAXIS
     Dosage: 1 PILL 1X A MONTH MOUTH
     Route: 048
     Dates: start: 20090403
  2. ACTONEL [Suspect]
     Indication: RESORPTION BONE INCREASED
     Dosage: 1 PILL 1X A MONTH MOUTH
     Route: 048
     Dates: start: 20090403

REACTIONS (2)
  - INFLUENZA LIKE ILLNESS [None]
  - NAUSEA [None]
